FAERS Safety Report 9741848 (Version 2)
Quarter: 2013Q4

REPORT INFORMATION
  Report Type: Report from Study
  Country: CZ (occurrence: CZ)
  Receive Date: 20131210
  Receipt Date: 20131216
  Transmission Date: 20140711
  Serious: Yes (Death)
  Sender: FDA-Public Use
  Company Number: PHHY2013CZ143075

PATIENT
  Sex: Female

DRUGS (1)
  1. IMATINIB [Suspect]
     Dosage: 400 MG, PER DAY
     Dates: start: 20040917, end: 20050324

REACTIONS (2)
  - Diabetic gangrene [Fatal]
  - Myocardial ischaemia [Fatal]
